FAERS Safety Report 25861511 (Version 2)
Quarter: 2025Q4

REPORT INFORMATION
  Report Type: Report from Study
  Country: US (occurrence: US)
  Receive Date: 20250930
  Receipt Date: 20251003
  Transmission Date: 20260117
  Serious: No
  Sender: ABBVIE
  Company Number: US-ABBVIE-6470168

PATIENT
  Sex: Female

DRUGS (2)
  1. ARMOUR THYROID [Suspect]
     Active Substance: THYROID, PORCINE
     Indication: Hypothyroidism
     Route: 048
  2. INFLUENZA VIRUS VACCINE [Suspect]
     Active Substance: INFLUENZA VIRUS VACCINE
     Indication: Product used for unknown indication
     Route: 065

REACTIONS (8)
  - Gastrointestinal disorder [Unknown]
  - Off label use [Unknown]
  - Illness [Unknown]
  - Swelling [Unknown]
  - Dyspnoea [Unknown]
  - Pharyngeal disorder [Unknown]
  - Product quality issue [Unknown]
  - Anxiety [Unknown]
